FAERS Safety Report 23638825 (Version 2)
Quarter: 2024Q1

REPORT INFORMATION
  Report Type: Spontaneous
  Country: RU (occurrence: None)
  Receive Date: 20240315
  Receipt Date: 20240322
  Transmission Date: 20240409
  Serious: No
  Sender: FDA-Public Use
  Company Number: 2024A062863

PATIENT
  Age: 3 Year
  Sex: Male
  Weight: 12 kg

DRUGS (8)
  1. PULMICORT TURBUHALER [Suspect]
     Active Substance: BUDESONIDE
     Indication: Bronchitis
     Route: 055
     Dates: start: 20200307, end: 20200322
  2. PULMICORT TURBUHALER [Suspect]
     Active Substance: BUDESONIDE
     Indication: Pneumonia
     Route: 055
     Dates: start: 20200307, end: 20200322
  3. FENOTEROL HYDROBROMIDE\IPRATROPIUM BROMIDE [Concomitant]
     Active Substance: FENOTEROL HYDROBROMIDE\IPRATROPIUM BROMIDE
     Dates: start: 20200307
  4. AMBROXOL [Concomitant]
     Active Substance: AMBROXOL
     Dates: start: 20200307
  5. CLARITHROMYCIN [Concomitant]
     Active Substance: CLARITHROMYCIN
     Dosage: 90 MG 2 TIMES A DAY
     Dates: start: 20200307
  6. CEPIME [Concomitant]
     Dosage: 100 MG/KG/PER DAY
     Dates: start: 20200308, end: 20200310
  7. VANCOMYCIN [Concomitant]
     Active Substance: VANCOMYCIN
     Dosage: 40 MG/KG/PER DAY
  8. ACIPOL [Concomitant]

REACTIONS (1)
  - Off label use [Unknown]
